FAERS Safety Report 6095332-8 (Version None)
Quarter: 2009Q1

REPORT INFORMATION
  Report Type: 
  Country: None (occurrence: None)
  Receive Date: 20090227
  Receipt Date: 20080310
  Transmission Date: 20090719
  Serious: No
  Sender: FDA-Public Use
  Company Number: A0714333A

PATIENT
  Sex: Male

DRUGS (4)
  1. LAMICTAL [Suspect]
     Indication: BIPOLAR DISORDER
     Dosage: 25MG PER DAY
     Route: 048
  2. CYMBALTA [Concomitant]
  3. ALTACE [Concomitant]
  4. KLONOPIN [Concomitant]

REACTIONS (1)
  - RASH [None]
